FAERS Safety Report 7066857-3 (Version None)
Quarter: 2010Q4

REPORT INFORMATION
  Report Type: 
  Country: None (occurrence: None)
  Receive Date: 20101027
  Receipt Date: 20100928
  Transmission Date: 20110411
  Serious: No
  Sender: FDA-Public Use
  Company Number: US-WYE-H17849110

PATIENT
  Sex: Female

DRUGS (2)
  1. PREMPRO [Suspect]
     Indication: PRODUCT USED FOR UNKNOWN INDICATION
     Dosage: NOT SPECIFIED
     Route: 048
     Dates: end: 20100101
  2. PREMPRO [Suspect]
     Dosage: NOT SPECIFIED
     Route: 048
     Dates: start: 20100921

REACTIONS (1)
  - DRUG INEFFECTIVE [None]
